FAERS Safety Report 12244609 (Version 1)
Quarter: 2016Q2

REPORT INFORMATION
  Report Type: Spontaneous
  Country: US (occurrence: US)
  Receive Date: 20160407
  Receipt Date: 20160407
  Transmission Date: 20160815
  Serious: No
  Sender: FDA-Public Use
  Company Number: US-ASTRAZENECA-2016SE34952

PATIENT
  Sex: Female
  Weight: 53.1 kg

DRUGS (3)
  1. TUDORZA PRESSAIR [Suspect]
     Active Substance: ACLIDINIUM BROMIDE
     Indication: COUGH
     Dosage: 400MCG ONE PUFF TWICE DAILY
     Route: 055
     Dates: start: 201602
  2. BRIO [Concomitant]
     Indication: COUGH
     Route: 055
     Dates: start: 201602
  3. ESOMEPRAZOLE MAGNESIUM. [Suspect]
     Active Substance: ESOMEPRAZOLE MAGNESIUM
     Indication: COUGH
     Route: 048
     Dates: start: 201602

REACTIONS (4)
  - Off label use [Unknown]
  - Product use issue [Unknown]
  - Dysgeusia [Unknown]
  - Product quality issue [Unknown]
